FAERS Safety Report 8149965-5 (Version None)
Quarter: 2012Q1

REPORT INFORMATION
  Report Type: 
  Country: None (occurrence: None)
  Receive Date: 20120218
  Receipt Date: 20111222
  Transmission Date: 20120608
  Serious: Yes (Other)
  Sender: FDA-Public Use
  Company Number: US-ALLERGAN-1116746US

PATIENT
  Age: 58 Year
  Sex: Female

DRUGS (2)
  1. LUMIGAN [Suspect]
     Indication: HYPOTRICHOSIS
     Dosage: 2 GTT, QD
     Route: 061
     Dates: start: 20111101, end: 20111220
  2. BOTOX COSMETIC [Suspect]
     Indication: SKIN WRINKLING
     Dosage: UNK
     Route: 030
     Dates: start: 20110901, end: 20110901

REACTIONS (3)
  - RENAL IMPAIRMENT [None]
  - DRUG ADMINISTERED AT INAPPROPRIATE SITE [None]
  - RENAL FAILURE [None]
